FAERS Safety Report 15619542 (Version 1)
Quarter: 2018Q4

REPORT INFORMATION
  Report Type: Spontaneous
  Country: GB (occurrence: GB)
  Receive Date: 20181115
  Receipt Date: 20181115
  Transmission Date: 20190205
  Serious: Yes (Disabling)
  Sender: FDA-Public Use
  Company Number: GB-TEVA-2018-GB-975356

PATIENT
  Age: 73 Year
  Sex: Female
  Weight: 69 kg

DRUGS (3)
  1. RISEDRONATE SODIUM. [Suspect]
     Active Substance: RISEDRONATE SODIUM
     Route: 065
     Dates: start: 20180412
  2. AMLODIPINE [Concomitant]
     Active Substance: AMLODIPINE BESYLATE
     Dosage: 1 DOSAGE FORMS DAILY;
     Route: 065
     Dates: start: 20170725
  3. COCODAMOL [Concomitant]
     Active Substance: ACETAMINOPHEN\CODEINE PHOSPHATE
     Dosage: 1-2 FOUR TIMES A DAY
     Route: 065
     Dates: start: 20170725

REACTIONS (3)
  - Asthenia [Unknown]
  - Abdominal discomfort [Unknown]
  - Dyspepsia [Recovered/Resolved]

NARRATIVE: CASE EVENT DATE: 20181016
